FAERS Safety Report 9819641 (Version 1)
Quarter: 2014Q1

REPORT INFORMATION
  Report Type: Spontaneous
  Country: US (occurrence: None)
  Receive Date: 20140113
  Receipt Date: 20140113
  Transmission Date: 20141002
  Serious: Yes (Death, Hospitalization)
  Sender: FDA-Public Use
  Company Number: 152387

PATIENT
  Sex: Female
  Weight: 64 kg

DRUGS (2)
  1. CYTARABINE [Suspect]
     Indication: ACUTE MYELOID LEUKAEMIA
     Dosage: (100 MG/M2, DAYS 1-7
     Route: 042
     Dates: start: 20131202, end: 20131208
  2. DAUNORUBICIN [Concomitant]

REACTIONS (7)
  - Pleural infection [None]
  - Febrile neutropenia [None]
  - Sepsis [None]
  - Respiratory failure [None]
  - Renal failure acute [None]
  - Pneumonia [None]
  - Pneumonia pseudomonal [None]
